FAERS Safety Report 6844519-2 (Version None)
Quarter: 2010Q3

REPORT INFORMATION
  Report Type: 
  Country: None (occurrence: None)
  Receive Date: 20100713
  Receipt Date: 20100705
  Transmission Date: 20110219
  Serious: Yes (Other)
  Sender: FDA-Public Use
  Company Number: 008457

PATIENT
  Sex: Female

DRUGS (2)
  1. KEPPRA [Suspect]
     Dosage: (500 MG BID)
  2. PRENATAL VITAMINS /01549301/ [Concomitant]

REACTIONS (4)
  - BLIGHTED OVUM [None]
  - CONVULSION [None]
  - MENTAL DISORDER [None]
  - TREATMENT NONCOMPLIANCE [None]
